FAERS Safety Report 6846303-2 (Version None)
Quarter: 2010Q3

REPORT INFORMATION
  Report Type: 
  Country: None (occurrence: None)
  Receive Date: 20100715
  Receipt Date: 20070916
  Transmission Date: 20110219
  Serious: No
  Sender: FDA-Public Use
  Company Number: US-PFIZER INC-2007077788

PATIENT
  Sex: Female
  Weight: 81.8 kg

DRUGS (12)
  1. CHANTIX [Suspect]
     Indication: SMOKING CESSATION THERAPY
     Dates: start: 20070801, end: 20070801
  2. KLONOPIN [Concomitant]
  3. LOPID [Concomitant]
  4. LEVOXYL [Concomitant]
  5. VYTORIN [Concomitant]
  6. DEPAKOTE [Concomitant]
  7. LAMICTAL [Concomitant]
  8. FELODIPINE [Concomitant]
  9. BENICAR [Concomitant]
  10. SEROQUEL [Concomitant]
  11. XOPENEX [Concomitant]
  12. FLOVENT [Concomitant]

REACTIONS (1)
  - NIGHTMARE [None]
